FAERS Safety Report 20048432 (Version 1)
Quarter: 2021Q4

REPORT INFORMATION
  Report Type: Spontaneous
  Country: US (occurrence: US)
  Receive Date: 20211109
  Receipt Date: 20211109
  Transmission Date: 20220303
  Serious: No
  Sender: FDA-Public Use
  Company Number: US-NOVARTISTESTPH-NVSC2021US255007

PATIENT
  Age: 63 Year
  Sex: Female

DRUGS (1)
  1. TYKERB [Suspect]
     Active Substance: LAPATINIB DITOSYLATE
     Indication: Breast cancer female
     Dosage: 1250 MG, QD
     Route: 048
     Dates: start: 20211011

REACTIONS (1)
  - Rhinorrhoea [Unknown]

NARRATIVE: CASE EVENT DATE: 20211031
